FAERS Safety Report 23453042 (Version 2)
Quarter: 2024Q3

REPORT INFORMATION
  Report Type: Report from Study
  Country: IT (occurrence: IT)
  Receive Date: 20240129
  Receipt Date: 20240911
  Transmission Date: 20241016
  Serious: Yes (Other)
  Sender: RANBAXY
  Company Number: IT-SUN PHARMACEUTICAL INDUSTRIES LTD-2024R1-429029

PATIENT
  Age: 54 Year
  Sex: Male
  Weight: 97 kg

DRUGS (9)
  1. DABIGATRAN [Interacting]
     Active Substance: DABIGATRAN
     Indication: Anticoagulant therapy
     Dosage: UNK
     Route: 048
  2. LACOSAMIDE [Suspect]
     Active Substance: LACOSAMIDE
     Indication: Partial seizures
     Dosage: 200 MILLIGRAM, DAILY
     Route: 065
  3. METFORMIN [Concomitant]
     Active Substance: METFORMIN HYDROCHLORIDE
     Indication: Anticoagulant therapy
     Dosage: UNK
     Route: 048
  4. LANSOPRAZOLE [Concomitant]
     Active Substance: LANSOPRAZOLE
     Indication: Anticoagulant therapy
     Dosage: UNK
     Route: 048
  5. FUROSEMIDE [Concomitant]
     Active Substance: FUROSEMIDE
     Indication: Anticoagulant therapy
     Dosage: UNK
     Route: 048
  6. ATORVASTATIN [Concomitant]
     Active Substance: ATORVASTATIN
     Indication: Anticoagulant therapy
     Dosage: UNK
     Route: 048
  7. AMLODIPINE [Concomitant]
     Active Substance: AMLODIPINE BESYLATE
     Indication: Anticoagulant therapy
     Dosage: UNK
     Route: 048
  8. INSULIN DEGLUDEC [Concomitant]
     Active Substance: INSULIN DEGLUDEC
     Indication: Product used for unknown indication
     Route: 065
  9. LIRAGLUTIDE [Concomitant]
     Active Substance: LIRAGLUTIDE
     Indication: Product used for unknown indication
     Route: 065

REACTIONS (3)
  - Drug interaction [Unknown]
  - Drug level decreased [Unknown]
  - Ischaemic stroke [Unknown]
